FAERS Safety Report 13043278 (Version 2)
Quarter: 2017Q4

REPORT INFORMATION
  Report Type: Report from Study
  Country: DE (occurrence: DE)
  Receive Date: 20161219
  Receipt Date: 20171024
  Transmission Date: 20180320
  Serious: Yes (Death, Hospitalization)
  Sender: FDA-Public Use
  Company Number: DE-AMGEN-DEUNI2016178810

PATIENT
  Age: 81 Year
  Sex: Female

DRUGS (9)
  1. FENTANYL TRANSDERMAL SYSTEM [Concomitant]
     Active Substance: FENTANYL
     Indication: ABDOMINAL PAIN LOWER
     Dosage: UNK
     Dates: start: 201605
  2. PROLIA [Concomitant]
     Active Substance: DENOSUMAB
     Dosage: UNK
  3. ASPIRIN. [Concomitant]
     Active Substance: ASPIRIN
     Dosage: UNK
  4. ETANERCEPT [Suspect]
     Active Substance: ETANERCEPT
     Indication: RHEUMATOID ARTHRITIS
     Dosage: 50 MG, WEEKLY (EVERY 7 DAYS)
     Route: 065
  5. SPASMEX [Concomitant]
     Active Substance: TROSPIUM CHLORIDE
     Dosage: UNK
  6. PREDNISOLONE. [Concomitant]
     Active Substance: PREDNISOLONE
     Dosage: UNK
  7. AMLODIPINE [Concomitant]
     Active Substance: AMLODIPINE BESYLATE
     Dosage: UNK
  8. BISOPROLOL [Concomitant]
     Active Substance: BISOPROLOL
     Dosage: UNK
  9. FENTANYL TRANSDERMAL SYSTEM [Concomitant]
     Active Substance: FENTANYL
     Indication: ASTHENIA

REACTIONS (1)
  - Cystitis bacterial [Fatal]

NARRATIVE: CASE EVENT DATE: 201607
